FAERS Safety Report 15339516 (Version 2)
Quarter: 2018Q4

REPORT INFORMATION
  Report Type: Spontaneous
  Country: JP (occurrence: JP)
  Receive Date: 20180831
  Receipt Date: 20181226
  Transmission Date: 20190204
  Serious: Yes (Other)
  Sender: FDA-Public Use
  Company Number: JP-PFIZER INC-2018346528

PATIENT
  Age: 55 Year
  Sex: Male

DRUGS (4)
  1. DEPAKENE [VALPROATE SODIUM] [Concomitant]
     Indication: BIPOLAR DISORDER
     Dosage: UNK
  2. LYRICA [Suspect]
     Active Substance: PREGABALIN
     Indication: NEURALGIA
     Dosage: 50 MG, 1X/DAY
     Route: 048
     Dates: start: 20161006, end: 20161013
  3. LYRICA [Suspect]
     Active Substance: PREGABALIN
     Dosage: 75 MG, 1X/DAY
     Route: 048
     Dates: start: 20161014, end: 20161019
  4. LIMAS [Concomitant]
     Active Substance: LITHIUM CARBONATE
     Indication: BIPOLAR DISORDER
     Dosage: UNK

REACTIONS (1)
  - Facial paralysis [Recovered/Resolved]

NARRATIVE: CASE EVENT DATE: 20161015
